FAERS Safety Report 10537216 (Version 1)
Quarter: 2014Q4

REPORT INFORMATION
  Report Type: Spontaneous
  Country: GB (occurrence: GB)
  Receive Date: 20141023
  Receipt Date: 20141023
  Transmission Date: 20150529
  Serious: Yes (Other)
  Sender: FDA-Public Use
  Company Number: GB-ASPEN PHARMA TRADING LIMITED US-AG-2014-006669

PATIENT
  Age: 32 Year
  Sex: Female
  Weight: 86.4 kg

DRUGS (12)
  1. CYCLOPHOSPHAMIDE. [Suspect]
     Active Substance: CYCLOPHOSPHAMIDE
     Indication: LEUKAEMIA RECURRENT
     Route: 065
     Dates: start: 201212
  2. BUSULFAN [Suspect]
     Active Substance: BUSULFAN
     Indication: LEUKAEMIA RECURRENT
     Route: 065
     Dates: start: 201212
  3. ANTHRACYCLINES AND RELATED SUBSTANCES [Suspect]
     Active Substance: UNSPECIFIED INGREDIENT
     Indication: ACUTE PROMYELOCYTIC LEUKAEMIA
     Route: 065
     Dates: start: 201002
  4. IDARUBICIN [Suspect]
     Active Substance: IDARUBICIN
     Indication: ACUTE PROMYELOCYTIC LEUKAEMIA
     Route: 065
     Dates: start: 201002
  5. TRISENOX [Suspect]
     Active Substance: ARSENIC TRIOXIDE
     Indication: LEUKAEMIA RECURRENT
     Dosage: WEEK 1 - 0.3MG/DAY, FOR 5 DAYS (2DAYS REST)
     Route: 065
     Dates: start: 201309
  6. ATRA [Suspect]
     Active Substance: TRETINOIN
     Indication: LEUKAEMIA RECURRENT
     Route: 065
     Dates: start: 201309
  7. MYLOTARG [Suspect]
     Active Substance: GEMTUZUMAB OZOGAMICIN
     Indication: LEUKAEMIA RECURRENT
     Route: 065
     Dates: start: 201309
  8. MITOXANTRONE [Suspect]
     Active Substance: MITOXANTRONE HYDROCHLORIDE
     Indication: ACUTE PROMYELOCYTIC LEUKAEMIA
     Route: 065
     Dates: start: 201002
  9. ATRA [Suspect]
     Active Substance: TRETINOIN
     Indication: ACUTE PROMYELOCYTIC LEUKAEMIA
     Route: 065
     Dates: start: 201002
  10. IDARUBICIN [Suspect]
     Active Substance: IDARUBICIN
     Indication: LEUKAEMIA RECURRENT
     Route: 065
     Dates: start: 201309
  11. THIOTEPA. [Suspect]
     Active Substance: THIOTEPA
     Indication: LEUKAEMIA RECURRENT
     Route: 065
     Dates: start: 201212
  12. TRISENOX [Suspect]
     Active Substance: ARSENIC TRIOXIDE
     Dosage: WEEKS 2-4 - 0.25 MG TWICE A WEEK (5DAYS REST)
     Route: 065

REACTIONS (3)
  - Malaise [Unknown]
  - Lower respiratory tract infection fungal [Unknown]
  - Leukaemia recurrent [Unknown]

NARRATIVE: CASE EVENT DATE: 201309
